FAERS Safety Report 4713715-2 (Version None)
Quarter: 2005Q3

REPORT INFORMATION
  Report Type: 
  Country: None (occurrence: None)
  Receive Date: 20050713
  Receipt Date: 20050624
  Transmission Date: 20060218
  Serious: Yes (Hospitalization, Other)
  Sender: FDA-Public Use
  Company Number: USA040977747

PATIENT
  Age: 88 Year
  Sex: Female

DRUGS (11)
  1. FORTEO [Suspect]
     Indication: OSTEOPOROSIS
     Dosage: 20 UG/1 DAY
     Dates: start: 20040803
  2. EVISTA [Suspect]
     Indication: OSTEOPOROSIS
     Dosage: 60 MG DAY
     Dates: start: 20030501, end: 20050501
  3. DARVOCET [Suspect]
     Indication: PAIN
     Dates: start: 20040801
  4. CALCIUM WITH VITAMIN D [Concomitant]
  5. VITAMIN E [Concomitant]
  6. GLUCOSAMINE W/CHONDROITIN [Concomitant]
  7. NAPROXEN SODIUM [Concomitant]
  8. STOOL SOFTENER (DOCUSATE SODIUM) [Concomitant]
  9. ASPIRIN [Concomitant]
  10. ESOMEPRAZOLE MAGNESIUM [Concomitant]
  11. BEXTRA [Concomitant]

REACTIONS (22)
  - ARTHRALGIA [None]
  - ARTHROPATHY [None]
  - ASTHENIA [None]
  - BLINDNESS UNILATERAL [None]
  - BONE PAIN [None]
  - CHEST PAIN [None]
  - CHOLELITHIASIS [None]
  - COMPRESSION FRACTURE [None]
  - DIVERTICULITIS [None]
  - GASTROOESOPHAGEAL REFLUX DISEASE [None]
  - HEADACHE [None]
  - INJECTION SITE HAEMORRHAGE [None]
  - INJECTION SITE PAIN [None]
  - MALAISE [None]
  - NAUSEA [None]
  - NEOPLASM MALIGNANT [None]
  - OEDEMA PERIPHERAL [None]
  - PAIN IN EXTREMITY [None]
  - PANCREATOLITHIASIS [None]
  - PHARMACEUTICAL PRODUCT COMPLAINT [None]
  - SKIN ULCER [None]
  - SURGERY [None]
